FAERS Safety Report 5257986-5 (Version None)
Quarter: 2007Q1

REPORT INFORMATION
  Report Type: 
  Country: None (occurrence: None)
  Receive Date: 20070307
  Receipt Date: 20061127
  Transmission Date: 20070707
  Serious: No
  Sender: FDA-Public Use
  Company Number: US-GLAXOSMITHKLINE-A0628828A

PATIENT

DRUGS (1)
  1. REQUIP [Suspect]
     Indication: DRUG USE FOR UNKNOWN INDICATION
     Dosage: 2MG AT NIGHT
     Route: 048
     Dates: start: 20060301

REACTIONS (4)
  - LACRIMATION INCREASED [None]
  - PARANASAL SINUS HYPERSECRETION [None]
  - THERAPEUTIC RESPONSE UNEXPECTED [None]
  - YAWNING [None]
